FAERS Safety Report 21869819 (Version 2)
Quarter: 2023Q1

REPORT INFORMATION
  Report Type: Spontaneous
  Country: IT (occurrence: IT)
  Receive Date: 20230117
  Receipt Date: 20230119
  Transmission Date: 20230418
  Serious: Yes (Hospitalization, Other)
  Sender: FDA-Public Use
  Company Number: None

PATIENT
  Age: 67 Year
  Sex: Female

DRUGS (6)
  1. PREDNISOLONE [Suspect]
     Active Substance: PREDNISOLONE
     Indication: Eosinophilic granulomatosis with polyangiitis
     Dosage: 0.1 MILLIGRAM/KILOGRAM/DAY (SYSTEMIC)
     Route: 065
     Dates: start: 2016
  2. PREDNISOLONE [Suspect]
     Active Substance: PREDNISOLONE
     Dosage: 1 MILLIGRAM/KILOGRAM/DAY (0.8-1 MG/KG/DAY)
     Route: 065
     Dates: end: 2021
  3. PREDNISOLONE [Suspect]
     Active Substance: PREDNISOLONE
     Dosage: 0.8 MILLIGRAM/KILOGRAM/DAY (0.8-1 MG/KG/DAY)
     Route: 065
     Dates: end: 2021
  4. AZATHIOPRINE [Suspect]
     Active Substance: AZATHIOPRINE
     Indication: Eosinophilic granulomatosis with polyangiitis
     Dosage: UNK
     Route: 065
  5. OMALIZUMAB [Suspect]
     Active Substance: OMALIZUMAB
     Indication: Eosinophilic granulomatosis with polyangiitis
     Dosage: UNK
     Route: 065
  6. MEPOLIZUMAB [Suspect]
     Active Substance: MEPOLIZUMAB
     Indication: Eosinophilic granulomatosis with polyangiitis
     Dosage: UNK
     Route: 065
     Dates: end: 2021

REACTIONS (14)
  - Asthma [Recovered/Resolved]
  - Neuropathy peripheral [Recovered/Resolved]
  - Eosinophilia [Recovered/Resolved]
  - Incorrect product administration duration [Unknown]
  - Urticaria [Recovered/Resolved]
  - Steroid diabetes [Unknown]
  - Meningitis bacterial [Recovered/Resolved]
  - Disseminated strongyloidiasis [Recovered/Resolved]
  - Strongyloidiasis [Recovered/Resolved]
  - Central nervous system infection [Recovered/Resolved]
  - Citrobacter bacteraemia [Recovered/Resolved]
  - Enterobacter bacteraemia [Recovered/Resolved]
  - Drug ineffective [Unknown]
  - Off label use [Unknown]

NARRATIVE: CASE EVENT DATE: 20201101
